FAERS Safety Report 22640800 (Version 7)
Quarter: 2023Q4

REPORT INFORMATION
  Report Type: Spontaneous
  Country: US (occurrence: US)
  Receive Date: 20230626
  Receipt Date: 20231213
  Transmission Date: 20240109
  Serious: Yes (Other)
  Sender: FDA-Public Use
  Company Number: US-PFIZER INC-202300228106

PATIENT
  Age: 5 Year
  Sex: Male
  Weight: 14.059 kg

DRUGS (3)
  1. GENOTROPIN [Suspect]
     Active Substance: SOMATROPIN
     Indication: Growth disorder
     Dosage: 0.6 MG, ALTERNATE DAY
     Route: 058
  2. GENOTROPIN [Suspect]
     Active Substance: SOMATROPIN
     Dosage: 0.7 MG, ALTERNATE DAY
     Route: 058
  3. VITAMINS [Concomitant]
     Active Substance: VITAMINS
     Dosage: UNK, DAILY
     Route: 048

REACTIONS (2)
  - Tonsillectomy [Unknown]
  - Pain [Unknown]

NARRATIVE: CASE EVENT DATE: 20230606
